FAERS Safety Report 9506246 (Version 1)
Quarter: 2013Q1

REPORT INFORMATION
  Report Type: Spontaneous
  Country: US (occurrence: None)
  Receive Date: 20130301
  Receipt Date: 20130301
  Transmission Date: 20140127
  Serious: Yes (Hospitalization, Other)
  Sender: FDA-Public Use
  Company Number: RB-40967-2012

PATIENT
  Sex: Female
  Weight: 3.08 kg

DRUGS (3)
  1. SUBOXONE [Suspect]
     Indication: DRUG DEPENDENCE
     Dosage: VARIOUS DOSES; 1ST AND 2ND TRIMESTER TRANSPLACENTAL)
     Route: 064
     Dates: start: 201107, end: 2011
  2. SUBOXONE [Suspect]
     Indication: DRUG DEPENDENCE
     Dosage: 8 MG, SUBOXONE FILM; 3RD TRIMESTER TRANSPLACENTAL
     Route: 064
     Dates: start: 2011
  3. MORPHINE [Suspect]
     Indication: DRUG DISPENSING ERROR
     Dosage: ONCE

REACTIONS (2)
  - Foetal exposure during pregnancy [None]
  - Drug withdrawal syndrome neonatal [None]
